FAERS Safety Report 9524150 (Version 1)
Quarter: 2013Q3

REPORT INFORMATION
  Report Type: Spontaneous
  Country: US (occurrence: US)
  Receive Date: 20130916
  Receipt Date: 20130916
  Transmission Date: 20140515
  Serious: Yes (Hospitalization)
  Sender: FDA-Public Use
  Company Number: US-JNJFOC-20130904573

PATIENT
  Sex: Male

DRUGS (4)
  1. SIMPONI [Suspect]
     Indication: COLITIS ULCERATIVE
     Route: 058
     Dates: start: 20130903
  2. PREDNISONE [Concomitant]
     Route: 065
  3. PERCOCET [Concomitant]
     Route: 065
  4. ASACOL [Concomitant]
     Route: 065

REACTIONS (2)
  - Infection [Unknown]
  - Haemoglobin decreased [Unknown]
